FAERS Safety Report 23904354 (Version 1)
Quarter: 2024Q2

REPORT INFORMATION
  Report Type: Spontaneous
  Country: US (occurrence: US)
  Receive Date: 20240527
  Receipt Date: 20240527
  Transmission Date: 20240716
  Serious: Yes (Other)
  Sender: FDA-Public Use
  Company Number: US-SA-SAC20240522001441

PATIENT
  Age: 66 Year
  Sex: Male

DRUGS (1)
  1. CAPRELSA [Suspect]
     Active Substance: VANDETANIB
     Indication: Thyroid cancer
     Dosage: 200 MG, QD
     Route: 048
     Dates: start: 20221110

REACTIONS (4)
  - Prostatomegaly [Recovered/Resolved]
  - Urinary retention [Recovered/Resolved]
  - Urinary tract infection [Unknown]
  - Blood calcitonin decreased [Recovered/Resolved]
